FAERS Safety Report 4431974-0 (Version None)
Quarter: 2004Q3

REPORT INFORMATION
  Report Type: 
  Country: None (occurrence: None)
  Receive Date: 20040819
  Receipt Date: 20040806
  Transmission Date: 20050211
  Serious: Yes (Hospitalization, Other)
  Sender: FDA-Public Use
  Company Number: USA-2004-0014584

PATIENT
  Age: 54 Year
  Sex: Male

DRUGS (8)
  1. OXYCONTIN [Suspect]
     Dosage: SEE IMAGE
     Route: 050
  2. LOMOTIL (DIPHENOXYLATE HYDROCHLORIDE, ATROPINE SULFATE0 [Concomitant]
  3. AMITRIPTYLINE HCL [Concomitant]
  4. RIFAMPICIN [Concomitant]
  5. CALCITONIN (CALCITONIN) [Concomitant]
  6. GABAPENTIN [Concomitant]
  7. THEOPHYLLINE (SIMILAR TO 40-086) (THEOPHILLINE) [Concomitant]
  8. METOPROLOL TARTRATE [Concomitant]

REACTIONS (2)
  - INTENTIONAL MISUSE [None]
  - LEG AMPUTATION [None]
